FAERS Safety Report 7024778-6 (Version None)
Quarter: 2010Q4

REPORT INFORMATION
  Report Type: 
  Country: None (occurrence: None)
  Receive Date: 20101001
  Receipt Date: 20100923
  Transmission Date: 20110411
  Serious: Yes (Other)
  Sender: FDA-Public Use
  Company Number: US-PFIZER INC-2010121920

PATIENT
  Sex: Male
  Weight: 81.633 kg

DRUGS (6)
  1. GEODON [Suspect]
     Indication: MENTAL DISORDER
     Dosage: 80 MG, UNK
  2. ALCOHOL [Suspect]
     Dosage: UNK
  3. IBUPROFEN [Concomitant]
     Dosage: UNK
  4. DIPHENHYDRAMINE [Concomitant]
     Dosage: UNK
  5. NEURONTIN [Concomitant]
     Dosage: UNK
  6. LEXAPRO [Concomitant]
     Dosage: UNK

REACTIONS (1)
  - THEFT [None]
